FAERS Safety Report 14098407 (Version 4)
Quarter: 2018Q1

REPORT INFORMATION
  Report Type: Report from Study
  Country: CA (occurrence: CA)
  Receive Date: 20171017
  Receipt Date: 20180123
  Transmission Date: 20180508
  Serious: Yes (Other)
  Sender: FDA-Public Use
  Company Number: CA-ROCHE-2005576

PATIENT
  Sex: Female

DRUGS (2)
  1. ALECENSARO [Suspect]
     Active Substance: ALECTINIB
     Indication: NON-SMALL CELL LUNG CANCER METASTATIC
     Route: 048
     Dates: start: 20170331
  2. ROSUVASTATIN. [Concomitant]
     Active Substance: ROSUVASTATIN

REACTIONS (14)
  - Nasopharyngitis [Unknown]
  - Bronchial wall thickening [Unknown]
  - Bronchitis [Recovered/Resolved]
  - Photosensitivity reaction [Recovered/Resolved]
  - Lymphadenopathy mediastinal [Not Recovered/Not Resolved]
  - Cough [Not Recovered/Not Resolved]
  - Drug ineffective [Unknown]
  - Lymphadenopathy [Not Recovered/Not Resolved]
  - Diarrhoea [Unknown]
  - Brain neoplasm [Not Recovered/Not Resolved]
  - Alopecia [Unknown]
  - Lymphadenopathy [Unknown]
  - Abdominal lymphadenopathy [Unknown]
  - Hilar lymphadenopathy [Not Recovered/Not Resolved]
